FAERS Safety Report 17940110 (Version 1)
Quarter: 2020Q2

REPORT INFORMATION
  Report Type: Spontaneous
  Country: US (occurrence: US)
  Receive Date: 20200624
  Receipt Date: 20200624
  Transmission Date: 20200714
  Serious: Yes (Life-Threatening, Hospitalization)
  Sender: FDA-Public Use
  Company Number: None

PATIENT
  Age: 78 Year
  Sex: Male

DRUGS (1)
  1. RASAGILINE (RASAGILINE MESYLATE 1MG TAB) [Suspect]
     Active Substance: RASAGILINE MESYLATE
     Route: 048
     Dates: start: 20200312, end: 20200406

REACTIONS (3)
  - Depression [None]
  - Suicide attempt [None]
  - Hallucination [None]

NARRATIVE: CASE EVENT DATE: 20200406
